FAERS Safety Report 10442598 (Version 2)
Quarter: 2014Q4

REPORT INFORMATION
  Report Type: Report from Study
  Country: US (occurrence: US)
  Receive Date: 20140909
  Receipt Date: 20141009
  Transmission Date: 20150528
  Serious: Yes (Hospitalization)
  Sender: FDA-Public Use
  Company Number: US-SA-2014SA119536

PATIENT
  Age: 63 Year
  Sex: Male
  Weight: 80.6 kg

DRUGS (50)
  1. OXALIPLATIN. [Suspect]
     Active Substance: OXALIPLATIN
     Indication: ADENOCARCINOMA PANCREAS
     Dosage: FREQUENCY: EVERY 2 WEEKS
     Route: 065
     Dates: start: 20140721, end: 20140721
  2. FLUOROURACIL. [Suspect]
     Active Substance: FLUOROURACIL
     Indication: ADENOCARCINOMA PANCREAS
     Dosage: FREQUENCY: EVERY 2 WEEKS
     Route: 040
     Dates: start: 20140707, end: 20140707
  3. INSULIN [Concomitant]
     Active Substance: INSULIN NOS
  4. DIAZEPAM. [Concomitant]
     Active Substance: DIAZEPAM
  5. HUMULIN N [Concomitant]
     Active Substance: INSULIN HUMAN
  6. NOVOLOG [Concomitant]
     Active Substance: INSULIN ASPART
  7. OXALIPLATIN. [Suspect]
     Active Substance: OXALIPLATIN
     Indication: ADENOCARCINOMA PANCREAS
     Dosage: FREQUENCY: EVERY 2 WEEKS
     Route: 065
     Dates: start: 20140707, end: 20140707
  8. OXALIPLATIN. [Suspect]
     Active Substance: OXALIPLATIN
     Indication: ADENOCARCINOMA PANCREAS
     Dosage: FREQUENCY: EVERY 2 WEEKS
     Route: 065
     Dates: start: 20140811, end: 20140811
  9. IRINOTECAN HYDROCHLORIDE. [Suspect]
     Active Substance: IRINOTECAN HYDROCHLORIDE
     Indication: ADENOCARCINOMA PANCREAS
     Dosage: FREQUENCY: EVERY 2 WEEKS
     Route: 042
     Dates: start: 20140811, end: 20140811
  10. ONDANSETRON HYDROCHLORIDE. [Concomitant]
     Active Substance: ONDANSETRON HYDROCHLORIDE
  11. LEUCOVORIN [Suspect]
     Active Substance: LEUCOVORIN
     Indication: ADENOCARCINOMA PANCREAS
     Dosage: FREQUENCY: EVERY 2 WEEKS
     Route: 065
     Dates: start: 20140908, end: 20140908
  12. FLUOROURACIL. [Suspect]
     Active Substance: FLUOROURACIL
     Indication: ADENOCARCINOMA PANCREAS
     Dosage: FREQUENCY: EVERY 2 WEEKS
     Route: 040
     Dates: start: 20140623, end: 20140623
  13. BLINDED THERAPY [Suspect]
     Active Substance: INVESTIGATIONAL PRODUCT
     Indication: ADENOCARCINOMA PANCREAS
     Route: 048
     Dates: start: 20140825, end: 20140908
  14. IRINOTECAN HYDROCHLORIDE. [Suspect]
     Active Substance: IRINOTECAN HYDROCHLORIDE
     Indication: ADENOCARCINOMA PANCREAS
     Dosage: FREQUENCY: EVERY 2 WEEKS
     Route: 042
     Dates: start: 20140908, end: 20140908
  15. IRINOTECAN HYDROCHLORIDE. [Suspect]
     Active Substance: IRINOTECAN HYDROCHLORIDE
     Indication: ADENOCARCINOMA PANCREAS
     Dosage: FREQUENCY: EVERY 2 WEEKS
     Route: 042
     Dates: start: 20140623, end: 20140623
  16. IRINOTECAN HYDROCHLORIDE. [Suspect]
     Active Substance: IRINOTECAN HYDROCHLORIDE
     Indication: ADENOCARCINOMA PANCREAS
     Dosage: FREQUENCY: EVERY 2 WEEKS
     Route: 042
     Dates: start: 20140721, end: 20140721
  17. LEUCOVORIN [Suspect]
     Active Substance: LEUCOVORIN
     Indication: ADENOCARCINOMA PANCREAS
     Dosage: FREQUENCY: EVERY 2 WEEKS
     Route: 065
     Dates: start: 20140602, end: 20140602
  18. LEUCOVORIN [Suspect]
     Active Substance: LEUCOVORIN
     Indication: ADENOCARCINOMA PANCREAS
     Dosage: FREQUENCY: EVERY 2 WEEKS
     Route: 065
     Dates: start: 20140707, end: 20140707
  19. LEUCOVORIN [Suspect]
     Active Substance: LEUCOVORIN
     Indication: ADENOCARCINOMA PANCREAS
     Dosage: FREQUENCY: EVERY 2 WEEKS
     Route: 065
     Dates: start: 20140721, end: 20140721
  20. FLUOROURACIL. [Suspect]
     Active Substance: FLUOROURACIL
     Indication: ADENOCARCINOMA PANCREAS
     Dosage: FREQUENCY: EVERY 2 WEEKS
     Route: 040
     Dates: start: 20140811, end: 20140811
  21. GLUCAGON. [Concomitant]
     Active Substance: GLUCAGON
  22. HYDROCODONE W/ACETAMINOPHEN [Concomitant]
     Active Substance: ACETAMINOPHEN\HYDROCODONE BITARTRATE
  23. PROCHLORPERAZINE MALEATE. [Concomitant]
     Active Substance: PROCHLORPERAZINE MALEATE
  24. VITAMIN D [Concomitant]
     Active Substance: CHOLECALCIFEROL
  25. OXALIPLATIN. [Suspect]
     Active Substance: OXALIPLATIN
     Indication: ADENOCARCINOMA PANCREAS
     Dosage: FREQUENCY: EVERY 2 WEEKS
     Route: 065
     Dates: start: 20140602, end: 20140602
  26. IRINOTECAN HYDROCHLORIDE. [Suspect]
     Active Substance: IRINOTECAN HYDROCHLORIDE
     Indication: ADENOCARCINOMA PANCREAS
     Dosage: FREQUENCY: EVERY 2 WEEKS
     Route: 042
     Dates: start: 20140825, end: 20140825
  27. FLUOROURACIL. [Suspect]
     Active Substance: FLUOROURACIL
     Indication: ADENOCARCINOMA PANCREAS
     Dosage: FREQUENCY: EVERY 2 WEEKS
     Route: 042
     Dates: start: 20140908, end: 20140908
  28. LANTUS SOLOSTAR [Concomitant]
     Active Substance: INSULIN GLARGINE
  29. LIDOCAINE HYDROCHLORIDE/PRILOCAINE HYDROCHLORIDE [Concomitant]
  30. FLEXPEN [Concomitant]
     Active Substance: UNSPECIFIED INGREDIENT
  31. LEUCOVORIN [Suspect]
     Active Substance: LEUCOVORIN
     Indication: ADENOCARCINOMA PANCREAS
     Dosage: FREQUENCY: EVERY 2 WEEKS
     Route: 065
     Dates: start: 20140825, end: 20140825
  32. LEUCOVORIN [Suspect]
     Active Substance: LEUCOVORIN
     Indication: ADENOCARCINOMA PANCREAS
     Dosage: FREQUENCY: EVERY 2 WEEKS
     Route: 065
     Dates: start: 20140623, end: 20140623
  33. FLUOROURACIL. [Suspect]
     Active Substance: FLUOROURACIL
     Indication: ADENOCARCINOMA PANCREAS
     Dosage: FREQUENCY: EVERY 2 WEEKS
     Route: 040
     Dates: start: 20140721, end: 20140721
  34. FLUOROURACIL. [Suspect]
     Active Substance: FLUOROURACIL
     Indication: ADENOCARCINOMA PANCREAS
     Dosage: FREQUENCY: EVERY 2 WEEKS
     Route: 042
     Dates: start: 20140623, end: 20140623
  35. SOLOSTAR [Concomitant]
     Active Substance: DEVICE
  36. OXALIPLATIN. [Suspect]
     Active Substance: OXALIPLATIN
     Indication: ADENOCARCINOMA PANCREAS
     Dosage: FREQUENCY: EVERY 2 WEEKS
     Route: 065
     Dates: start: 20140623, end: 20140623
  37. IRINOTECAN HYDROCHLORIDE. [Suspect]
     Active Substance: IRINOTECAN HYDROCHLORIDE
     Indication: ADENOCARCINOMA PANCREAS
     Dosage: FREQUENCY: EVERY 2 WEEKS
     Route: 042
     Dates: start: 20140707, end: 20140707
  38. FLUOROURACIL. [Suspect]
     Active Substance: FLUOROURACIL
     Indication: ADENOCARCINOMA PANCREAS
     Dosage: FREQUENCY: EVERY 2 WEEKS
     Route: 042
     Dates: start: 20140825, end: 20140825
  39. FLUOROURACIL. [Suspect]
     Active Substance: FLUOROURACIL
     Indication: ADENOCARCINOMA PANCREAS
     Dosage: FREQUENCY: EVERY 2 WEEKS
     Route: 042
     Dates: start: 20140602, end: 20140602
  40. FLUOROURACIL. [Suspect]
     Active Substance: FLUOROURACIL
     Indication: ADENOCARCINOMA PANCREAS
     Dosage: FREQUENCY: EVERY 2 WEEKS
     Route: 042
     Dates: start: 20140811, end: 20140811
  41. AMLODIPINE BESILATE [Concomitant]
     Active Substance: AMLODIPINE BESYLATE
  42. OXALIPLATIN. [Suspect]
     Active Substance: OXALIPLATIN
     Indication: ADENOCARCINOMA PANCREAS
     Dosage: FREQUENCY: EVERY 2 WEEKS
     Route: 065
     Dates: start: 20140908, end: 20140908
  43. OXALIPLATIN. [Suspect]
     Active Substance: OXALIPLATIN
     Indication: ADENOCARCINOMA PANCREAS
     Dosage: FREQUENCY: EVERY 2 WEEKS
     Route: 065
     Dates: start: 20140825, end: 20140825
  44. IRINOTECAN HYDROCHLORIDE. [Suspect]
     Active Substance: IRINOTECAN HYDROCHLORIDE
     Indication: ADENOCARCINOMA PANCREAS
     Dosage: FREQUENCY: EVERY 2 WEEKS
     Route: 042
     Dates: start: 20140602, end: 20140602
  45. LEUCOVORIN [Suspect]
     Active Substance: LEUCOVORIN
     Indication: ADENOCARCINOMA PANCREAS
     Dosage: FREQUENCY: EVERY 2 WEEKS
     Route: 065
     Dates: start: 20140811, end: 20140811
  46. FLUOROURACIL. [Suspect]
     Active Substance: FLUOROURACIL
     Indication: ADENOCARCINOMA PANCREAS
     Dosage: FREQUENCY: EVERY 2 WEEKS
     Route: 040
     Dates: start: 20140602, end: 20140602
  47. FLUOROURACIL. [Suspect]
     Active Substance: FLUOROURACIL
     Indication: ADENOCARCINOMA PANCREAS
     Dosage: FREQUENCY: EVERY 2 WEEKS
     Route: 042
     Dates: start: 20140707, end: 20140707
  48. FLUOROURACIL. [Suspect]
     Active Substance: FLUOROURACIL
     Indication: ADENOCARCINOMA PANCREAS
     Dosage: FREQUENCY: EVERY 2 WEEKS
     Route: 042
     Dates: start: 20140721, end: 20140721
  49. BLINDED THERAPY [Suspect]
     Active Substance: INVESTIGATIONAL PRODUCT
     Indication: ADENOCARCINOMA PANCREAS
     Route: 048
     Dates: start: 20140602, end: 20140813
  50. INSULIN PEN NOS [Concomitant]
     Active Substance: INSULIN NOS

REACTIONS (1)
  - Cholangitis [Recovered/Resolved]

NARRATIVE: CASE EVENT DATE: 20140813
